FAERS Safety Report 20590012 (Version 1)
Quarter: 2022Q1

REPORT INFORMATION
  Report Type: Spontaneous
  Country: US (occurrence: US)
  Receive Date: 20220314
  Receipt Date: 20220314
  Transmission Date: 20220423
  Serious: No
  Sender: FDA-Public Use
  Company Number: US-JNJFOC-20220303686

PATIENT
  Sex: Female

DRUGS (1)
  1. WOMENS ROGAINE UNSCENTED [Suspect]
     Active Substance: MINOXIDIL
     Indication: Alopecia
     Dosage: DOSE: AS RECOMMENDED
     Route: 061
     Dates: start: 2021

REACTIONS (3)
  - Drug ineffective [Unknown]
  - Product expiration date issue [Unknown]
  - Product lot number issue [Unknown]
